FAERS Safety Report 11222760 (Version 1)
Quarter: 2015Q2

REPORT INFORMATION
  Report Type: Spontaneous
  Country: IT (occurrence: IT)
  Receive Date: 20150626
  Receipt Date: 20150626
  Transmission Date: 20150821
  Serious: Yes (Life-Threatening)
  Sender: FDA-Public Use
  Company Number: IT-HOSPIRA-14102

PATIENT
  Age: 58 Year
  Sex: Male

DRUGS (3)
  1. PACLITAXEL. [Suspect]
     Active Substance: PACLITAXEL
     Indication: NON-SMALL CELL LUNG CANCER
     Dosage: ONCE
     Route: 042
     Dates: start: 20060419
  2. PACLITAXEL. [Suspect]
     Active Substance: PACLITAXEL
     Indication: METASTASES TO CENTRAL NERVOUS SYSTEM
     Dosage: ONCE
     Route: 042
     Dates: start: 20060419
  3. CARBOPLATIN. [Concomitant]
     Active Substance: CARBOPLATIN
     Indication: PRODUCT USED FOR UNKNOWN INDICATION
     Route: 042
     Dates: start: 20060419

REACTIONS (5)
  - Dyspepsia [Recovered/Resolved]
  - Hypertensive crisis [Recovered/Resolved]
  - Hyperhidrosis [Recovered/Resolved]
  - Flushing [Recovered/Resolved]
  - Pain [Recovered/Resolved]

NARRATIVE: CASE EVENT DATE: 20060510
